FAERS Safety Report 11283958 (Version 1)
Quarter: 2015Q3

REPORT INFORMATION
  Report Type: Spontaneous
  Country: US (occurrence: US)
  Receive Date: 20150720
  Receipt Date: 20150720
  Transmission Date: 20151125
  Serious: No
  Sender: FDA-Public Use
  Company Number: US-BAYER-2015-375093

PATIENT
  Age: 44 Year
  Sex: Female

DRUGS (1)
  1. CLIMARA [Suspect]
     Active Substance: ESTRADIOL
     Dosage: 0.075 MG/DAY
     Route: 062
     Dates: start: 1998

REACTIONS (4)
  - Skin irritation [None]
  - Product adhesion issue [None]
  - Product size issue [None]
  - Product physical issue [None]
